FAERS Safety Report 8520672-X (Version None)
Quarter: 2012Q3

REPORT INFORMATION
  Report Type: 
  Country: None (occurrence: None)
  Receive Date: 20120709
  Receipt Date: 20120629
  Transmission Date: 20120928
  Serious: Yes (Hospitalization)
  Sender: FDA-Public Use
  Company Number: 2012HGS-003148

PATIENT
  Age: 37 Year
  Sex: Female
  Weight: 58.9676 kg

DRUGS (8)
  1. PRILOSEC (OMEPRAZOLE) (OMEPRAZOLE) [Concomitant]
  2. OMEGA-3 (OMEGA-3 TRIGLYCERIDES) (OMEGA-3 TRIGLYCERIDES) [Concomitant]
  3. PLAQUENIL [Concomitant]
  4. BENLYSTA [Suspect]
     Indication: SYSTEMIC LUPUS ERYTHEMATOSUS
     Dosage: 1 IN 28 D, INTRAVENOUS DRIP
     Route: 041
     Dates: start: 20120109
  5. ZANTAC [Concomitant]
  6. PREDNISONE [Concomitant]
  7. VITAMIN C (ASCORBIC ACID) (ASCORBIC ACID) [Concomitant]
  8. DURAGESIC (FENTANYL) (FENTANYL) [Concomitant]

REACTIONS (9)
  - JOINT SWELLING [None]
  - PROTEIN URINE PRESENT [None]
  - PAIN [None]
  - OEDEMA PERIPHERAL [None]
  - CATATONIA [None]
  - ASTHENIA [None]
  - SWELLING FACE [None]
  - FEELING ABNORMAL [None]
  - GENERALISED OEDEMA [None]
